FAERS Safety Report 16210038 (Version 2)
Quarter: 2019Q2

REPORT INFORMATION
  Report Type: Report from Study
  Country: DO (occurrence: DO)
  Receive Date: 20190417
  Receipt Date: 20190614
  Transmission Date: 20190711
  Serious: Yes (Other)
  Sender: FDA-Public Use
  Company Number: PHHY2018DO135766

PATIENT
  Sex: Female

DRUGS (9)
  1. DOLGENAL [KETOROLAC TROMETHAMINE] [Suspect]
     Active Substance: KETOROLAC TROMETHAMINE
     Indication: PRODUCT USED FOR UNKNOWN INDICATION
     Dosage: 10 MG, UNK
     Route: 048
  2. SCAPHO [Suspect]
     Active Substance: SECUKINUMAB
     Dosage: UNK
     Route: 065
     Dates: start: 20190528
  3. METHOTREXATE. [Concomitant]
     Active Substance: METHOTREXATE
     Indication: PRODUCT USED FOR UNKNOWN INDICATION
     Dosage: 8 DF, QW
     Route: 065
  4. AVALOR [Concomitant]
     Indication: PAIN
     Dosage: 0.25 DF, QD
     Route: 065
  5. AVELOX [Suspect]
     Active Substance: MOXIFLOXACIN HYDROCHLORIDE
     Indication: PRODUCT USED FOR UNKNOWN INDICATION
     Dosage: 30 MG, UNK
     Route: 048
  6. SCAPHO [Suspect]
     Active Substance: SECUKINUMAB
     Indication: ANKYLOSING SPONDYLITIS
     Dosage: 150 MG, UNK
     Route: 065
  7. GADOL [Suspect]
     Active Substance: CIMETIDINE
     Indication: PRODUCT USED FOR UNKNOWN INDICATION
     Dosage: 100 MG, UNK
     Route: 048
  8. ZALDIAR [Concomitant]
     Active Substance: ACETAMINOPHEN\TRAMADOL HYDROCHLORIDE
     Indication: PAIN
     Dosage: UNK
     Route: 065
  9. TRAMADOL. [Concomitant]
     Active Substance: TRAMADOL
     Indication: PRODUCT USED FOR UNKNOWN INDICATION
     Route: 065

REACTIONS (22)
  - Eye oedema [Unknown]
  - Urinary tract infection [Unknown]
  - Arthralgia [Unknown]
  - Oedema peripheral [Recovering/Resolving]
  - Visual impairment [Unknown]
  - Sciatica [Unknown]
  - Lenticular opacities [Unknown]
  - Nervous system disorder [Unknown]
  - Nerve degeneration [Unknown]
  - Gait inability [Recovering/Resolving]
  - Ankylosing spondylitis [Unknown]
  - Pain in extremity [Unknown]
  - Muscle spasms [Unknown]
  - Malaise [Unknown]
  - Pain [Not Recovered/Not Resolved]
  - Fall [Unknown]
  - Skin discolouration [Recovering/Resolving]
  - Cataract [Unknown]
  - Eye injury [Unknown]
  - Musculoskeletal stiffness [Unknown]
  - Asthenia [Unknown]
  - Stress [Unknown]
